FAERS Safety Report 14261559 (Version 1)
Quarter: 2017Q4

REPORT INFORMATION
  Report Type: Spontaneous
  Country: GR (occurrence: GR)
  Receive Date: 20171208
  Receipt Date: 20171208
  Transmission Date: 20180321
  Serious: Yes (Other)
  Sender: FDA-Public Use
  Company Number: GR-TEVA-2017-GR-830009

PATIENT
  Age: 41 Year

DRUGS (1)
  1. COPAXONE [Suspect]
     Active Substance: GLATIRAMER ACETATE
     Indication: MULTIPLE SCLEROSIS
     Route: 058

REACTIONS (6)
  - Loss of consciousness [Unknown]
  - Injection site pain [Unknown]
  - Erythema [Unknown]
  - Influenza like illness [Unknown]
  - Pain [Unknown]
  - Chest discomfort [Unknown]
